FAERS Safety Report 24462205 (Version 1)
Quarter: 2024Q4

REPORT INFORMATION
  Report Type: Report from Study
  Country: CA (occurrence: CA)
  Receive Date: 20241018
  Receipt Date: 20241018
  Transmission Date: 20250114
  Serious: No
  Sender: ROCHE
  Company Number: CA-ROCHE-3564533

PATIENT
  Sex: Female

DRUGS (15)
  1. RITUXAN [Suspect]
     Active Substance: RITUXIMAB
     Indication: Rheumatoid arthritis
     Dosage: FREQUENCY TEXT:DAY 1, DAY 15
     Route: 042
     Dates: start: 20191022
  2. ACTONEL [Concomitant]
     Active Substance: RISEDRONATE SODIUM
  3. FLUTICASONE FUROATE [Concomitant]
     Active Substance: FLUTICASONE FUROATE
  4. CALCIUM [Concomitant]
     Active Substance: CALCIUM
  5. DEPO-MEDROL [Concomitant]
     Active Substance: METHYLPREDNISOLONE ACETATE
     Indication: Intervertebral disc protrusion
     Route: 058
  6. DEXILANT [Concomitant]
     Active Substance: DEXLANSOPRAZOLE
  7. MAGNESIUM [Concomitant]
     Active Substance: MAGNESIUM
  8. MONTELUKAST [Concomitant]
     Active Substance: MONTELUKAST
  9. PRAVASTATIN [Concomitant]
     Active Substance: PRAVASTATIN
  10. PREDNISONE [Concomitant]
     Active Substance: PREDNISONE
  11. PROBIOTIC ACIDOPHILUS [LACTOBACILLUS ACIDOPHILUS] [Concomitant]
  12. RESTASIS [Concomitant]
     Active Substance: CYCLOSPORINE
  13. SENOKOT [Concomitant]
     Active Substance: SENNOSIDES
  14. ERGOCALCIFEROL [Concomitant]
     Active Substance: ERGOCALCIFEROL
  15. ZENHALE [Concomitant]
     Active Substance: FORMOTEROL FUMARATE\MOMETASONE FUROATE

REACTIONS (1)
  - Aortic disorder [Unknown]
